FAERS Safety Report 7957019-3 (Version None)
Quarter: 2011Q4

REPORT INFORMATION
  Report Type: 
  Country: None (occurrence: None)
  Receive Date: 20111205
  Receipt Date: 20111205
  Transmission Date: 20120403
  Serious: Yes (Hospitalization)
  Sender: FDA-Public Use
  Company Number: None

PATIENT
  Age: 50 Year
  Sex: Female
  Weight: 78.471 kg

DRUGS (1)
  1. PROPRANOLOL [Suspect]
     Indication: MIGRAINE PROPHYLAXIS
     Dosage: 1 PILL
     Route: 048
     Dates: start: 20110201, end: 20111202

REACTIONS (6)
  - INSOMNIA [None]
  - WEIGHT INCREASED [None]
  - SCREAMING [None]
  - CONVULSION [None]
  - VISION BLURRED [None]
  - HALLUCINATIONS, MIXED [None]
